FAERS Safety Report 4331874-0 (Version None)
Quarter: 2004Q2

REPORT INFORMATION
  Report Type: 
  Country: None (occurrence: None)
  Receive Date: 20040405
  Receipt Date: 20040130
  Transmission Date: 20050107
  Serious: No
  Sender: FDA-Public Use
  Company Number: US-GLAXOSMITHKLINE-A0495956A

PATIENT
  Sex: Female

DRUGS (5)
  1. FLOVENT [Suspect]
     Dosage: 2PUFF VARIABLE DOSE
     Route: 055
  2. SEREVENT [Suspect]
     Indication: ASTHMA
     Dosage: 2PUFF VARIABLE DOSE
     Route: 055
  3. SEREVENT [Suspect]
     Dosage: 1PUFF VARIABLE DOSE
     Route: 055
     Dates: start: 20040101
  4. LISINOPRIL [Concomitant]
  5. ALBUTEROL [Concomitant]

REACTIONS (1)
  - PHARYNGOLARYNGEAL PAIN [None]
